FAERS Safety Report 14565093 (Version 1)
Quarter: 2018Q1

REPORT INFORMATION
  Report Type: Spontaneous
  Country: CA (occurrence: CA)
  Receive Date: 20180223
  Receipt Date: 20180223
  Transmission Date: 20180509
  Serious: Yes (Other)
  Sender: FDA-Public Use
  Company Number: CA-AUROBINDO-AUR-APL-2018-002388

PATIENT
  Sex: Female

DRUGS (1)
  1. PANTOPRAZOLE 40MG [Suspect]
     Active Substance: PANTOPRAZOLE SODIUM
     Indication: STRESS ULCER
     Dosage: 40 MG, DAILY
     Route: 065

REACTIONS (8)
  - Foreign body in respiratory tract [Not Recovered/Not Resolved]
  - Palpitations [Not Recovered/Not Resolved]
  - Product substitution issue [Unknown]
  - Intentional product use issue [Unknown]
  - Weight decreased [Not Recovered/Not Resolved]
  - Gastrooesophageal reflux disease [Not Recovered/Not Resolved]
  - Hypophagia [Not Recovered/Not Resolved]
  - Oesophageal disorder [Not Recovered/Not Resolved]
